FAERS Safety Report 4885211-3 (Version None)
Quarter: 2005Q4

REPORT INFORMATION
  Report Type: 
  Country: None (occurrence: None)
  Receive Date: 20051214
  Receipt Date: 20051028
  Transmission Date: 20060501
  Serious: No
  Sender: FDA-Public Use
  Company Number: S05-USA-04774-01

PATIENT
  Age: 50 Year
  Sex: Female

DRUGS (2)
  1. CAMPRAL (ACAMPROSTATE CALCIUM) [Suspect]
     Indication: ABSTAINS FROM ALCOHOL
     Dosage: 666 MG TID PO
     Route: 048
     Dates: start: 20051025
  2. ZOLOFT [Concomitant]

REACTIONS (1)
  - INSOMNIA [None]
